FAERS Safety Report 5077378-1 (Version None)
Quarter: 2006Q3

REPORT INFORMATION
  Report Type: 
  Country: None (occurrence: None)
  Receive Date: 20060810
  Receipt Date: 20060206
  Transmission Date: 20061208
  Serious: No
  Sender: FDA-Public Use
  Company Number: US-GLAXOSMITHKLINE-A0592490A

PATIENT
  Age: 31 Year
  Sex: Male

DRUGS (2)
  1. PAROXETINE HCL [Suspect]
     Dosage: 20MG PER DAY
     Route: 048
  2. PROPECIA [Concomitant]

REACTIONS (1)
  - DIZZINESS [None]
